FAERS Safety Report 4400987-7 (Version None)
Quarter: 2004Q3

REPORT INFORMATION
  Report Type: 
  Country: None (occurrence: None)
  Receive Date: 20040907
  Receipt Date: 20030908
  Transmission Date: 20050211
  Serious: No
  Sender: FDA-Public Use
  Company Number: US-BRISTOL-MYERS SQUIBB COMPANY-12376752

PATIENT
  Age: 49 Year
  Sex: Female
  Weight: 59 kg

DRUGS (10)
  1. COUMADIN [Suspect]
     Indication: MITRAL VALVE REPLACEMENT
     Dosage: DOSE VALUE:  7.5 MG ONCE DAILY, ALTERNATING WITH 5 MG ON SUNDAYS AND WEDNESDAYS.
     Route: 048
  2. PLAVIX [Suspect]
     Indication: CEREBROVASCULAR ACCIDENT PROPHYLAXIS
     Route: 048
     Dates: start: 20030301
  3. COZAAR [Concomitant]
  4. FUROSEMIDE [Concomitant]
  5. POTASSIUM CHLORIDE [Concomitant]
  6. LEVOXYL [Concomitant]
  7. CALCIUM [Concomitant]
  8. VITAMIN C [Concomitant]
  9. GARLIC [Concomitant]
  10. VITAMIN B-12 [Concomitant]

REACTIONS (1)
  - CONTUSION [None]
